FAERS Safety Report 7523858-6 (Version None)
Quarter: 2011Q2

REPORT INFORMATION
  Report Type: 
  Country: None (occurrence: None)
  Receive Date: 20110603
  Receipt Date: 20110525
  Transmission Date: 20111010
  Serious: Yes (Other)
  Sender: FDA-Public Use
  Company Number: FI-ASTRAZENECA-2011SE32790

PATIENT
  Age: 82 Year
  Sex: Female

DRUGS (13)
  1. LYRICA [Concomitant]
     Indication: PAIN
  2. SIMVASTATIN(NOS) [Concomitant]
  3. PALLADONE [Concomitant]
     Indication: PAIN
  4. PALLADONE [Concomitant]
     Dosage: 3 MG, 2-3 TIMES PER DAY
  5. AMLODIPINE(NOS) [Concomitant]
  6. CALCIUM CARBONATE [Concomitant]
  7. PALLADONE [Concomitant]
     Indication: BREAKTHROUGH PAIN
  8. PALLADONE [Concomitant]
     Dosage: 3 MG, 2-3 TIMES PER DAY
  9. BONEFOS [Concomitant]
  10. PRIMASPAN [Concomitant]
  11. THYROXIN [Concomitant]
     Dosage: HALF TABLET OR 1 TABLET ON ALTERNATE DAYS
  12. FASLODEX [Suspect]
     Indication: BREAST CANCER
     Route: 030
     Dates: start: 20110104, end: 20110525
  13. EMCONCOR [Concomitant]

REACTIONS (1)
  - EPISTAXIS [None]
